FAERS Safety Report 19573517 (Version 1)
Quarter: 2021Q3

REPORT INFORMATION
  Report Type: Spontaneous
  Country: US (occurrence: US)
  Receive Date: 20210717
  Receipt Date: 20210717
  Transmission Date: 20211014
  Serious: Yes (Death, Other)
  Sender: FDA-Public Use
  Company Number: US-TAKEDA-2021TUS043142

PATIENT
  Age: 63 Year
  Sex: Male
  Weight: 177 kg

DRUGS (4)
  1. FOSRENOL [Suspect]
     Active Substance: LANTHANUM CARBONATE
     Indication: BLOOD PHOSPHORUS ABNORMAL
     Dosage: 1000 MILLIGRAM (3 FOSRENOL PILLS WITH EVERY MEAL/6?7 PILLS A DAY)
     Route: 065
  2. ELIQUIS [Concomitant]
     Active Substance: APIXABAN
     Dosage: 2.5 MILLIGRAM, BID
     Route: 065
  3. LEVOTHYROXINE. [Concomitant]
     Active Substance: LEVOTHYROXINE
     Dosage: 125 MICROGRAM, QD
     Route: 065
  4. VITAMIN D3 [Concomitant]
     Active Substance: CHOLECALCIFEROL
     Dosage: 4 DOSAGE FORM, QD
     Route: 065

REACTIONS (9)
  - Swollen tongue [Unknown]
  - Seizure [Unknown]
  - Dysarthria [Unknown]
  - Lethargy [Unknown]
  - Pharyngeal swelling [Unknown]
  - Cardiac arrest [Fatal]
  - Illness [Unknown]
  - Asthenia [Unknown]
  - Reaction to food additive [Unknown]

NARRATIVE: CASE EVENT DATE: 20201216
